FAERS Safety Report 17229774 (Version 8)
Quarter: 2020Q3

REPORT INFORMATION
  Report Type: Report from Study
  Country: US (occurrence: US)
  Receive Date: 20200103
  Receipt Date: 20200729
  Transmission Date: 20201102
  Serious: Yes (Other)
  Sender: FDA-Public Use
  Company Number: NVSC2019US084646

PATIENT
  Sex: Male

DRUGS (3)
  1. ENTRESTO [Suspect]
     Active Substance: SACUBITRIL\VALSARTAN
     Indication: CARDIAC FAILURE
     Dosage: UNK
     Route: 065
  2. ENTRESTO [Suspect]
     Active Substance: SACUBITRIL\VALSARTAN
     Indication: CARDIAC FAILURE
  3. ENTRESTO [Suspect]
     Active Substance: SACUBITRIL\VALSARTAN
     Indication: CARDIAC FAILURE CHRONIC

REACTIONS (12)
  - Arthritis [Unknown]
  - Decreased appetite [Recovered/Resolved]
  - Spondylitis [Unknown]
  - SARS-CoV-2 test positive [Recovering/Resolving]
  - Anosmia [Unknown]
  - Diarrhoea [Recovered/Resolved]
  - Arteriosclerosis [Unknown]
  - Depression [Unknown]
  - Arthropathy [Unknown]
  - Hyperhidrosis [Unknown]
  - Ageusia [Recovered/Resolved]
  - Weight decreased [Unknown]
